FAERS Safety Report 17538481 (Version 1)
Quarter: 2020Q1

REPORT INFORMATION
  Report Type: Spontaneous
  Country: ES (occurrence: ES)
  Receive Date: 20200313
  Receipt Date: 20200313
  Transmission Date: 20200409
  Serious: Yes (Other)
  Sender: FDA-Public Use
  Company Number: ES-009507513-2003ESP003500

PATIENT
  Age: 74 Year
  Sex: Female
  Weight: 60 kg

DRUGS (5)
  1. CARBOCAL D [Concomitant]
     Active Substance: CALCIUM\VITAMIN D
     Dosage: 1 DOSAGE FORM, QD; STRENGTH: 600 MG/400 IU, 60 TABLETS
     Route: 048
     Dates: start: 20191101
  2. HIDROFEROL [Concomitant]
     Active Substance: CALCIFEDIOL
     Indication: OSTEOPOROSIS
     Dosage: 0.27 MILLIGRAM; 10 CAPSULES (BLISTER PVC/PVDC-ALUMINIUM)
     Route: 048
     Dates: start: 20190102
  3. FOSAMAX [Suspect]
     Active Substance: ALENDRONATE SODIUM
     Dosage: 4 TABLETS
     Route: 048
     Dates: start: 20200211
  4. ESCITALOPRAM [Concomitant]
     Active Substance: ESCITALOPRAM OXALATE
     Dosage: 20 MILLIGRAM, QD; ESCITALOPRAM NORMON 56 TABLETS
     Route: 048
     Dates: start: 20160301
  5. MIRAPEXIN [Concomitant]
     Active Substance: PRAMIPEXOLE
     Indication: PARKINSON^S DISEASE
     Dosage: 2 DOSAGE FORMS DAILY; MIRAPEXIN 100 TABLETS
     Route: 048
     Dates: start: 20160221

REACTIONS (2)
  - Musculoskeletal stiffness [Recovering/Resolving]
  - Pain [Recovering/Resolving]

NARRATIVE: CASE EVENT DATE: 202002
